FAERS Safety Report 21303956 (Version 1)
Quarter: 2022Q3

REPORT INFORMATION
  Report Type: Report from Study
  Country: ES (occurrence: ES)
  Receive Date: 20220907
  Receipt Date: 20220907
  Transmission Date: 20221027
  Serious: Yes (Hospitalization, Other)
  Sender: FDA-Public Use
  Company Number: ES-TAKEDA-ALL1-2013-08057

PATIENT
  Age: 41 Year
  Sex: Male

DRUGS (27)
  1. ICATIBANT [Suspect]
     Active Substance: ICATIBANT ACETATE
     Indication: Hereditary angioedema
     Dosage: UNK, UNKNOWN
     Route: 065
     Dates: start: 20090907
  2. ICATIBANT [Suspect]
     Active Substance: ICATIBANT ACETATE
     Indication: Hereditary angioedema
     Dosage: UNK, UNKNOWN
     Route: 065
     Dates: start: 20090907
  3. ICATIBANT [Suspect]
     Active Substance: ICATIBANT ACETATE
     Dosage: UNK
     Route: 065
     Dates: start: 20090917
  4. ICATIBANT [Suspect]
     Active Substance: ICATIBANT ACETATE
     Dosage: UNK
     Route: 065
     Dates: start: 20090917
  5. BERINERT [Concomitant]
     Active Substance: HUMAN C1-ESTERASE INHIBITOR
     Indication: Hereditary angioedema
     Dosage: 1000 MILLIGRAM
     Route: 065
     Dates: start: 20110831
  6. SULFAMETHOXAZOLE\TRIMETHOPRIM [Concomitant]
     Active Substance: SULFAMETHOXAZOLE\TRIMETHOPRIM
     Indication: Antiviral prophylaxis
     Dosage: 250 MG, 2X/DAY:BID (EVERY 12 HOURS)
     Route: 048
     Dates: start: 20110603
  7. PANTOPRAZOLE SODIUM [Concomitant]
     Active Substance: PANTOPRAZOLE SODIUM
     Indication: Gastrooesophageal reflux prophylaxis
     Dosage: 40 MG, 1X/DAY:QD
     Route: 048
     Dates: start: 20110603
  8. ESCITALOPRAM [Concomitant]
     Active Substance: ESCITALOPRAM OXALATE
     Indication: Depression
     Dosage: 3 MG, 1X/DAY:QD
     Route: 048
     Dates: start: 20110603
  9. Lexatin [Concomitant]
     Indication: Anxiety
     Dosage: 3 MG, 1X/DAY:QD
     Route: 048
     Dates: start: 20110603
  10. METHYLPREDNISOLONE [Concomitant]
     Active Substance: METHYLPREDNISOLONE
     Indication: Immunosuppressant drug therapy
     Dosage: 40 MG, 2X/DAY:BID (EVERY 12 HOURS)
     Route: 048
     Dates: start: 20110603
  11. FOLIC ACID [Concomitant]
     Active Substance: FOLIC ACID
     Indication: Blood disorder
     Dosage: 5 MG, 1X/DAY:QD
     Route: 048
     Dates: start: 20110603
  12. NOXAFIL [Concomitant]
     Active Substance: POSACONAZOLE
     Indication: Blood disorder
     Dosage: 200 MG, 3X/DAY:TID (EVERY 8 HOURS)
     Route: 048
     Dates: start: 20110603
  13. RAPAMUNE [Concomitant]
     Active Substance: SIROLIMUS
     Indication: Prophylaxis against transplant rejection
     Dosage: 1 MG, 1X/DAY:QD
     Route: 048
     Dates: start: 20110603
  14. PREDNISONE [Concomitant]
     Active Substance: PREDNISONE
     Dosage: 7.5 MILLIGRAM, QD
     Route: 048
  15. OMEPRAZOLE [Concomitant]
     Active Substance: OMEPRAZOLE
     Indication: Gastric disorder
     Dosage: 20 MILLIGRAM, QD
     Route: 048
  16. DEXCHLORPHENIRAMINE [Concomitant]
     Active Substance: DEXCHLORPHENIRAMINE
     Indication: Antiallergic therapy
     Dosage: 2 MILLIGRAM, Q8HR
     Route: 048
  17. OLANZAPINE [Concomitant]
     Active Substance: OLANZAPINE
     Dosage: 10 MILLIGRAM, QD
     Route: 048
  18. MIRTAZAPINE [Concomitant]
     Active Substance: MIRTAZAPINE
     Dosage: 60 MILLIGRAM, QD
     Route: 048
  19. RIVOTRIL [Concomitant]
     Active Substance: CLONAZEPAM
     Indication: Anxiety
     Dosage: 0.5 MILLIGRAM
     Route: 048
  20. CLONAZEPAM [Concomitant]
     Active Substance: CLONAZEPAM
     Indication: Anxiolytic therapy
     Dosage: 3 MILLIGRAM, QD
     Route: 048
  21. MIRTAZAPINE [Concomitant]
     Active Substance: MIRTAZAPINE
     Dosage: 30 MILLIGRAM, QD
     Route: 048
  22. CIPROFLOXACIN HYDROCHLORIDE [Concomitant]
     Active Substance: CIPROFLOXACIN HYDROCHLORIDE
     Indication: Diarrhoea
     Dosage: 250 MILLIGRAM, BID
     Route: 048
     Dates: start: 20120124, end: 20120203
  23. CEFEPIME [Concomitant]
     Active Substance: CEFEPIME HYDROCHLORIDE
     Dosage: UNK
     Route: 065
     Dates: start: 20130402, end: 20130412
  24. VANCOMYCIN [Concomitant]
     Active Substance: VANCOMYCIN
     Dosage: UNK
     Route: 065
     Dates: start: 20130402, end: 20130412
  25. METHYLPREDNISOLONE [Concomitant]
     Active Substance: METHYLPREDNISOLONE
     Indication: Immunosuppression
     Dosage: 60 MILLIGRAM, QD
     Route: 048
     Dates: start: 20130418
  26. LORAZEPAM [Concomitant]
     Active Substance: LORAZEPAM
     Indication: Anxiety
     Dosage: 1 MILLIGRAM, QD
     Route: 048
     Dates: start: 20130418
  27. SIROLIMUS [Concomitant]
     Active Substance: SIROLIMUS
     Indication: Prophylaxis against transplant rejection
     Dosage: 2 MILLIGRAM, QD
     Route: 048
     Dates: start: 20130603

REACTIONS (1)
  - Rectal haemorrhage [Recovered/Resolved]

NARRATIVE: CASE EVENT DATE: 20110709
